FAERS Safety Report 5776767-7 (Version None)
Quarter: 2008Q2

REPORT INFORMATION
  Report Type: 
  Country: None (occurrence: None)
  Receive Date: 20080618
  Receipt Date: 20080407
  Transmission Date: 20081010
  Serious: Yes (Other)
  Sender: FDA-Public Use
  Company Number: US-ASTRAZENECA-2008UW06560

PATIENT
  Sex: Female

DRUGS (9)
  1. SYMBICORT [Suspect]
     Indication: ASTHMA
     Dosage: 80/4.5 2 PUFFS
     Route: 055
  2. METFORMIN [Concomitant]
  3. ENALAPRIL MALEATE [Concomitant]
  4. HYDROCHLOROTHIAZIDE [Concomitant]
  5. ALBUTEROL [Concomitant]
  6. OMEPRAZOLE [Concomitant]
     Route: 048
  7. ZYRTEC [Concomitant]
  8. SINGULAIR [Concomitant]
  9. BRICANYL [Concomitant]

REACTIONS (1)
  - ANGIOEDEMA [None]
